FAERS Safety Report 5365623-4 (Version None)
Quarter: 2007Q2

REPORT INFORMATION
  Report Type: 
  Country: None (occurrence: None)
  Receive Date: 20070621
  Receipt Date: 20070619
  Transmission Date: 20071010
  Serious: Yes (Other)
  Sender: FDA-Public Use
  Company Number: NL-JNJFOC-20070604145

PATIENT
  Age: 35 Year
  Sex: Female

DRUGS (2)
  1. MINOCYCLINE HCL [Suspect]
     Indication: CUTANEOUS SARCOIDOSIS
     Route: 065
  2. ISOTRETINOIN [Concomitant]
     Indication: CUTANEOUS SARCOIDOSIS
     Route: 065

REACTIONS (2)
  - LOCAL SWELLING [None]
  - PAPILLARY THYROID CANCER [None]
